FAERS Safety Report 6910522-7 (Version None)
Quarter: 2010Q3

REPORT INFORMATION
  Report Type: 
  Country: None (occurrence: None)
  Receive Date: 20100806
  Receipt Date: 20100802
  Transmission Date: 20110219
  Serious: Yes (Death, Other)
  Sender: FDA-Public Use
  Company Number: PHHY2010US50745

PATIENT
  Sex: Female
  Weight: 63.946 kg

DRUGS (1)
  1. EXJADE [Suspect]
     Indication: MYELODYSPLASTIC SYNDROME
     Dosage: 1000 DAILY
     Route: 048
     Dates: start: 20100325, end: 20100617

REACTIONS (4)
  - ACUTE MYELOID LEUKAEMIA [None]
  - DEATH [None]
  - DRUG INTOLERANCE [None]
  - MALIGNANT NEOPLASM PROGRESSION [None]
